FAERS Safety Report 9787151 (Version 1)
Quarter: 2013Q4

REPORT INFORMATION
  Report Type: Spontaneous
  Country: US (occurrence: US)
  Receive Date: 20131228
  Receipt Date: 20131228
  Transmission Date: 20140711
  Serious: No
  Sender: FDA-Public Use
  Company Number: US-TEVA-450995USA

PATIENT
  Age: 27 Year
  Sex: Female
  Weight: 52.66 kg

DRUGS (6)
  1. PARAGARD 380A [Suspect]
     Indication: CONTRACEPTION
     Route: 015
     Dates: start: 20131209, end: 20131212
  2. BUPROPION [Concomitant]
  3. FLUOXETINE [Concomitant]
  4. LORYNA [Concomitant]
  5. BIRTH CONTROL PILLS [Concomitant]
  6. MULTIVITAMIN [Concomitant]

REACTIONS (1)
  - Device expulsion [Recovered/Resolved]
